FAERS Safety Report 8221797-9 (Version None)
Quarter: 2012Q1

REPORT INFORMATION
  Report Type: 
  Country: None (occurrence: None)
  Receive Date: 20120320
  Receipt Date: 20120320
  Transmission Date: 20120608
  Serious: No
  Sender: FDA-Public Use
  Company Number: None

PATIENT
  Age: 46 Year
  Sex: Female
  Weight: 58.967 kg

DRUGS (1)
  1. DIAZEPAM [Suspect]
     Indication: POST-TRAUMATIC STRESS DISORDER
     Dosage: 2MG
     Route: 048
     Dates: start: 20120319, end: 20120320

REACTIONS (18)
  - DIVORCED [None]
  - HOMELESS [None]
  - PAIN [None]
  - HEAD INJURY [None]
  - STRESS [None]
  - SUICIDE ATTEMPT [None]
  - ASTHENIA [None]
  - ANXIETY [None]
  - NIGHTMARE [None]
  - CONFUSIONAL STATE [None]
  - PANIC ATTACK [None]
  - ROAD TRAFFIC ACCIDENT [None]
  - ANGER [None]
  - VICTIM OF SEXUAL ABUSE [None]
  - CLAUSTROPHOBIA [None]
  - DEPRESSION [None]
  - IMPAIRED DRIVING ABILITY [None]
  - AMNESIA [None]
